FAERS Safety Report 5862434-8 (Version None)
Quarter: 2008Q3

REPORT INFORMATION
  Report Type: 
  Country: None (occurrence: None)
  Receive Date: 20080828
  Receipt Date: 20080819
  Transmission Date: 20090109
  Serious: Yes (Hospitalization, Other)
  Sender: FDA-Public Use
  Company Number: GB-JNJFOC-20080804286

PATIENT
  Age: 55 Year
  Sex: Female
  Weight: 102 kg

DRUGS (6)
  1. REMICADE [Suspect]
     Indication: RHEUMATOID ARTHRITIS
     Route: 042
  2. LEFLUNOMIDE [Concomitant]
  3. ACECLOFENAC [Concomitant]
  4. CO-DYDRAMOL [Concomitant]
  5. FERROUS SULFATE TAB [Concomitant]
  6. METHOTREXATE SODIUM [Concomitant]

REACTIONS (1)
  - BREAST CANCER [None]
